FAERS Safety Report 11985250 (Version 5)
Quarter: 2016Q2

REPORT INFORMATION
  Report Type: Report from Study
  Country: US (occurrence: US)
  Receive Date: 20160201
  Receipt Date: 20160426
  Transmission Date: 20160815
  Serious: Yes (Death, Hospitalization)
  Sender: FDA-Public Use
  Company Number: US-ACTELION-A-NJ2015-123821

PATIENT
  Age: 70 Year
  Sex: Female

DRUGS (11)
  1. OPSUMIT [Suspect]
     Active Substance: MACITENTAN
     Indication: PULMONARY ARTERIAL HYPERTENSION
     Dosage: 10 MG, QD
     Route: 048
     Dates: start: 20150526, end: 20160402
  2. ASPIRIN. [Concomitant]
     Active Substance: ASPIRIN
     Dosage: 81 MG, QD
  3. ALDACTONE [Concomitant]
     Active Substance: SPIRONOLACTONE
     Dosage: 25 MG, QD
  4. PROTONIX [Concomitant]
     Active Substance: PANTOPRAZOLE SODIUM
     Dosage: 40 MG, QD
  5. EFFEXOR [Concomitant]
     Active Substance: VENLAFAXINE HYDROCHLORIDE
     Dosage: 75 MG, QD
  6. FOLIC ACID. [Concomitant]
     Active Substance: FOLIC ACID
     Dosage: 1 MG, QD
  7. VELETRI [Suspect]
     Active Substance: EPOPROSTENOL
     Indication: PULMONARY ARTERIAL HYPERTENSION
     Dosage: 51 NG/KG, PER MIN
     Route: 042
     Dates: start: 20110407, end: 20160402
  8. VELETRI [Suspect]
     Active Substance: EPOPROSTENOL
     Dosage: 45 NG/KG, PER MIN
     Route: 042
     Dates: start: 20110407
  9. LASIX [Concomitant]
     Active Substance: FUROSEMIDE
     Dosage: 20 MG, QD
  10. NEURONTIN [Concomitant]
     Active Substance: GABAPENTIN
     Dosage: 300 MG, BID
  11. RIOCIGUAT [Suspect]
     Active Substance: RIOCIGUAT
     Indication: PRODUCT USED FOR UNKNOWN INDICATION
     Dosage: 2.5 MG, TID
     Route: 048
     Dates: start: 20150526

REACTIONS (19)
  - Jugular vein distension [Fatal]
  - Fatigue [Unknown]
  - Depression [Unknown]
  - Eye disorder [Unknown]
  - Fall [Unknown]
  - Oedema peripheral [Recovering/Resolving]
  - Face injury [Unknown]
  - Pulmonary arterial wedge pressure increased [Recovered/Resolved]
  - Fluid overload [Recovering/Resolving]
  - Diarrhoea [Unknown]
  - Periorbital haemorrhage [Unknown]
  - Disease progression [Fatal]
  - Weight increased [Recovering/Resolving]
  - Pulmonary arterial hypertension [Fatal]
  - Right ventricular failure [Fatal]
  - Dyspnoea [Unknown]
  - Fluid retention [Recovering/Resolving]
  - Crepitations [Recovering/Resolving]
  - Mental disability [Unknown]

NARRATIVE: CASE EVENT DATE: 201511
